FAERS Safety Report 5253637-4 (Version None)
Quarter: 2007Q1

REPORT INFORMATION
  Report Type: 
  Country: None (occurrence: None)
  Receive Date: 20070301
  Receipt Date: 20070220
  Transmission Date: 20070707
  Serious: Yes (Hospitalization)
  Sender: FDA-Public Use
  Company Number: US-PFIZER INC-2007013892

PATIENT

DRUGS (1)
  1. CHANTIX [Suspect]

REACTIONS (1)
  - GUILLAIN-BARRE SYNDROME [None]
